FAERS Safety Report 15673527 (Version 1)
Quarter: 2018Q4

REPORT INFORMATION
  Report Type: Spontaneous
  Country: US (occurrence: US)
  Receive Date: 20181129
  Receipt Date: 20181129
  Transmission Date: 20190205
  Serious: No
  Sender: FDA-Public Use
  Company Number: US-PFIZER INC-2018482909

PATIENT
  Age: 68 Year
  Sex: Female

DRUGS (2)
  1. LYRICA [Suspect]
     Active Substance: PREGABALIN
     Indication: SPINAL CLAUDICATION
  2. LYRICA [Suspect]
     Active Substance: PREGABALIN
     Indication: LUMBAR SPINAL STENOSIS
     Dosage: 225 MG, DAILY (TAKE ONE CAPSULE BY MOUTH EVERY MORNING AND 2 CAPSULE AT BEDTIME)
     Route: 048

REACTIONS (2)
  - Pain in extremity [Unknown]
  - Back pain [Unknown]
